FAERS Safety Report 5394079-0 (Version None)
Quarter: 2007Q3

REPORT INFORMATION
  Report Type: 
  Country: None (occurrence: None)
  Receive Date: 20070723
  Receipt Date: 20070228
  Transmission Date: 20080115
  Serious: No
  Sender: FDA-Public Use
  Company Number: A0641365A

PATIENT
  Age: 75 Year
  Sex: Male

DRUGS (6)
  1. AVANDIA [Suspect]
     Dosage: 4MG PER DAY
     Route: 048
     Dates: start: 20070201
  2. METFORMIN HCL [Concomitant]
  3. GLICLAZIDE [Concomitant]
  4. COZAAR [Concomitant]
  5. UNKNOWN DRUG [Concomitant]
  6. UNKNOWN DRUG [Concomitant]

REACTIONS (2)
  - DRUG ADMINISTRATION ERROR [None]
  - PAIN IN EXTREMITY [None]
